FAERS Safety Report 18586420 (Version 1)
Quarter: 2020Q4

REPORT INFORMATION
  Report Type: Spontaneous
  Country: US (occurrence: US)
  Receive Date: 20201207
  Receipt Date: 20201207
  Transmission Date: 20210114
  Serious: Yes (Other)
  Sender: FDA-Public Use
  Company Number: None

PATIENT
  Age: 41 Year
  Sex: Female
  Weight: 99 kg

DRUGS (1)
  1. REMDESIVIR POWDER FOR INJECTION [Suspect]
     Active Substance: REMDESIVIR
     Indication: COVID-19
     Dosage: ?          OTHER FREQUENCY:SEE EVENT DESCRIPT;?
     Route: 042
     Dates: start: 20021202, end: 20201206

REACTIONS (2)
  - Alanine aminotransferase increased [None]
  - Intentional product use issue [None]

NARRATIVE: CASE EVENT DATE: 20201205
